FAERS Safety Report 16138156 (Version 1)
Quarter: 2019Q1

REPORT INFORMATION
  Report Type: Spontaneous
  Country: FR (occurrence: FR)
  Receive Date: 20190330
  Receipt Date: 20190330
  Transmission Date: 20190418
  Serious: Yes (Hospitalization)
  Sender: FDA-Public Use
  Company Number: FR-ACCORD-116301

PATIENT
  Age: 72 Year
  Sex: Female
  Weight: 56 kg

DRUGS (5)
  1. FLUOROURACIL. [Suspect]
     Active Substance: FLUOROURACIL
     Indication: COLORECTAL CANCER
     Dosage: OVER 48H,DATE OF LAST DOSE 04-DEC-2018 ,ALSO RECEIVED 625 MG BY INTRAVENOUS BOLUS
     Route: 041
     Dates: start: 20180717
  2. ATROPINE. [Suspect]
     Active Substance: ATROPINE
     Indication: PRODUCT USED FOR UNKNOWN INDICATION
     Dosage: DATE AND TIME OF LAST ADMINISTRATION: 04-DEC-2018
     Route: 058
     Dates: start: 20180717
  3. ZALTRAP [Suspect]
     Active Substance: ZIV-AFLIBERCEPT
     Indication: COLORECTAL CANCER
     Dosage: 225 MG PAR CURE,DATE AND TIME OF LAST ADMINISTRATION: 04-DEC-2018
     Route: 042
     Dates: start: 20180717
  4. FOLINIC ACID [Suspect]
     Active Substance: LEUCOVORIN
     Indication: COLORECTAL CANCER
     Dosage: DATE AND TIME OF LAST ADMINISTRATION: 04-DEC-2018
     Route: 042
     Dates: start: 20180717
  5. IRINOTECAN [Suspect]
     Active Substance: IRINOTECAN
     Indication: COLORECTAL CANCER
     Dosage: DATE AND TIME OF LAST ADMINISTRATION: 04-DEC-2018
     Route: 042
     Dates: start: 20180717

REACTIONS (1)
  - Progressive multifocal leukoencephalopathy [Not Recovered/Not Resolved]

NARRATIVE: CASE EVENT DATE: 20181206
